FAERS Safety Report 7255932-6 (Version None)
Quarter: 2011Q1

REPORT INFORMATION
  Report Type: 
  Country: None (occurrence: None)
  Receive Date: 20110129
  Receipt Date: 20100517
  Transmission Date: 20110831
  Serious: Yes (Other)
  Sender: FDA-Public Use
  Company Number: US-ABBOTT-10P-163-0643165-00

PATIENT
  Sex: Female

DRUGS (2)
  1. HUMIRA [Suspect]
     Indication: RHEUMATOID ARTHRITIS
     Dates: start: 20050504
  2. HUMIRA [Suspect]

REACTIONS (5)
  - BACK PAIN [None]
  - GALLBLADDER OPERATION [None]
  - MOBILITY DECREASED [None]
  - PAIN IN EXTREMITY [None]
  - ARTHRALGIA [None]
